FAERS Safety Report 6956199-6 (Version None)
Quarter: 2010Q3

REPORT INFORMATION
  Report Type: 
  Country: None (occurrence: None)
  Receive Date: 20100830
  Receipt Date: 20100824
  Transmission Date: 20110219
  Serious: Yes (Death)
  Sender: FDA-Public Use
  Company Number: US-GILEAD-2010-0031065

PATIENT
  Sex: Male

DRUGS (14)
  1. LETAIRIS [Suspect]
     Indication: PULMONARY ARTERIAL HYPERTENSION
  2. ASPIRIN [Concomitant]
  3. LASIX [Concomitant]
  4. PROTONIX [Concomitant]
  5. LEXAPRO [Concomitant]
  6. ZYRTEC [Concomitant]
  7. PREDNISONE [Concomitant]
  8. COZAAR [Concomitant]
  9. ZOCOR [Concomitant]
  10. MOBIC [Concomitant]
  11. CALCIUM [Concomitant]
  12. MULTI-VITAMIN [Concomitant]
  13. POTASSIUM [Concomitant]
  14. FIBERCON [Concomitant]

REACTIONS (1)
  - PULMONARY FIBROSIS [None]
